FAERS Safety Report 5877476-6 (Version None)
Quarter: 2008Q3

REPORT INFORMATION
  Report Type: 
  Country: None (occurrence: None)
  Receive Date: 20080909
  Receipt Date: 20080826
  Transmission Date: 20090109
  Serious: Yes (Other)
  Sender: FDA-Public Use
  Company Number: SPV1-2008-01844

PATIENT
  Age: 73 Year
  Sex: Female
  Weight: 82.5 kg

DRUGS (3)
  1. LIALDA [Suspect]
     Indication: CROHN'S DISEASE
     Dosage: 3.6 G, 1X/DAY:QD, ORAL
     Route: 048
     Dates: start: 20080526, end: 20080605
  2. HYZAAR	/01284801/ (HYDROCHLOROTHIAZIDE,LOSARTAN POTASSIUM) [Concomitant]
  3. TOPROL-XL [Concomitant]

REACTIONS (8)
  - ABASIA [None]
  - ANOREXIA [None]
  - APHASIA [None]
  - ASTHENIA [None]
  - FATIGUE [None]
  - FEELING ABNORMAL [None]
  - FREQUENT BOWEL MOVEMENTS [None]
  - OFF LABEL USE [None]
